FAERS Safety Report 11572993 (Version 1)
Quarter: 2015Q3

REPORT INFORMATION
  Report Type: Spontaneous
  Country: US (occurrence: US)
  Receive Date: 20150916
  Receipt Date: 20150916
  Transmission Date: 20151125
  Serious: No
  Sender: FDA-Public Use
  Company Number: US-ELI_LILLY_AND_COMPANY-US200910005946

PATIENT
  Sex: Female

DRUGS (2)
  1. CHOLESTEROL- AND TRIGLYCERIDE REDUCERS [Concomitant]
     Active Substance: UNSPECIFIED INGREDIENT
     Indication: BLOOD CHOLESTEROL
     Dosage: UNK, UNKNOWN
  2. FORTEO [Suspect]
     Active Substance: TERIPARATIDE
     Dosage: UNK, UNKNOWN
     Dates: start: 200909

REACTIONS (4)
  - Abdominal pain upper [Unknown]
  - Abdominal pain [Unknown]
  - Frequent bowel movements [Unknown]
  - Weight decreased [Unknown]

NARRATIVE: CASE EVENT DATE: 2009
